FAERS Safety Report 6256082-8 (Version None)
Quarter: 2009Q2

REPORT INFORMATION
  Report Type: 
  Country: None (occurrence: None)
  Receive Date: 20090630
  Receipt Date: 20090630
  Transmission Date: 20091009
  Serious: No
  Sender: FDA-Public Use
  Company Number: None

PATIENT
  Age: 51 Year
  Sex: Female

DRUGS (1)
  1. LATISSE [Suspect]
     Dosage: 1 DROP PER EYELID ONCE A DAY STERILE APPLICATORS - ONE FOR EACH EYE

REACTIONS (2)
  - PRODUCT LABEL CONFUSION [None]
  - PRODUCT PACKAGING QUANTITY ISSUE [None]
